FAERS Safety Report 19097744 (Version 3)
Quarter: 2021Q3

REPORT INFORMATION
  Report Type: Report from Study
  Country: None (occurrence: US)
  Receive Date: 20210406
  Receipt Date: 20210713
  Transmission Date: 20211014
  Serious: Yes (Life-Threatening, Hospitalization)
  Sender: FDA-Public Use
  Company Number: US-ABBVIE-20K-163-3599430-00

PATIENT
  Sex: Male

DRUGS (7)
  1. ADVIL [Concomitant]
     Active Substance: IBUPROFEN
     Dates: start: 2020, end: 2020
  2. HUMIRA [Suspect]
     Active Substance: ADALIMUMAB
     Route: 058
     Dates: start: 2021, end: 2021
  3. HUMIRA [Suspect]
     Active Substance: ADALIMUMAB
     Route: 058
     Dates: start: 2021, end: 2021
  4. HUMIRA [Suspect]
     Active Substance: ADALIMUMAB
     Indication: RHEUMATOID ARTHRITIS
     Route: 058
     Dates: end: 202003
  5. HUMIRA [Suspect]
     Active Substance: ADALIMUMAB
     Route: 058
     Dates: start: 20200930, end: 2021
  6. HUMIRA [Suspect]
     Active Substance: ADALIMUMAB
     Route: 058
     Dates: start: 20210627
  7. ADVIL [Concomitant]
     Active Substance: IBUPROFEN
     Indication: PRODUCT USED FOR UNKNOWN INDICATION
     Dosage: 6?8 DAYS
     Dates: end: 2020

REACTIONS (24)
  - Peripheral swelling [Recovered/Resolved]
  - Loss of personal independence in daily activities [Unknown]
  - Skin weeping [Unknown]
  - Arthralgia [Unknown]
  - Pneumothorax [Unknown]
  - Rib fracture [Unknown]
  - Intentional product misuse [Unknown]
  - Joint swelling [Not Recovered/Not Resolved]
  - Scab [Unknown]
  - Joint stiffness [Not Recovered/Not Resolved]
  - General physical health deterioration [Recovering/Resolving]
  - Discomfort [Recovering/Resolving]
  - Ligament sprain [Unknown]
  - Fall [Unknown]
  - Arthralgia [Recovered/Resolved]
  - Arthralgia [Recovering/Resolving]
  - Depression [Recovering/Resolving]
  - Arthralgia [Unknown]
  - Dermatitis allergic [Unknown]
  - Rash pruritic [Unknown]
  - Rash papular [Unknown]
  - Pain in extremity [Recovering/Resolving]
  - Anxiety [Recovering/Resolving]
  - Pain [Recovering/Resolving]

NARRATIVE: CASE EVENT DATE: 2020
